FAERS Safety Report 10349467 (Version 1)
Quarter: 2014Q3

REPORT INFORMATION
  Report Type: Spontaneous
  Country: US (occurrence: None)
  Receive Date: 20140728
  Receipt Date: 20140728
  Transmission Date: 20150326
  Serious: Yes (Other)
  Sender: FDA-Public Use
  Company Number: None

PATIENT
  Sex: Female
  Weight: 71.22 kg

DRUGS (1)
  1. DULOXETINE 60MG CITRON [Suspect]
     Active Substance: DULOXETINE
     Route: 048

REACTIONS (4)
  - Anxiety [None]
  - Headache [None]
  - Gastric disorder [None]
  - Dizziness [None]
